FAERS Safety Report 23728994 (Version 1)
Quarter: 2024Q2

REPORT INFORMATION
  Report Type: Report from Study
  Country: IN (occurrence: None)
  Receive Date: 20240410
  Receipt Date: 20240410
  Transmission Date: 20240716
  Serious: Yes (Death, Other)
  Sender: FDA-Public Use
  Company Number: 2020SE58363

PATIENT
  Age: 55 Year
  Sex: Female

DRUGS (10)
  1. BRILINTA [Suspect]
     Active Substance: TICAGRELOR
     Indication: Cardiac disorder
     Route: 048
     Dates: start: 20191213, end: 20200319
  2. ASPIRIN [Concomitant]
     Active Substance: ASPIRIN
     Indication: Cardiac disorder
     Dosage: DAILY
     Route: 048
     Dates: end: 20200319
  3. PANTODEC [Concomitant]
     Indication: Gastrooesophageal reflux disease
     Dosage: TWO TIMES A DAY
     Route: 048
     Dates: end: 20200319
  4. CRESTOR [Concomitant]
     Active Substance: ROSUVASTATIN CALCIUM
     Indication: Blood cholesterol
     Dosage: DAILY
     Route: 048
     Dates: end: 20200319
  5. MET XL [Concomitant]
     Indication: Cardiac disorder
     Dosage: TWO TIMES A DAY
     Route: 048
     Dates: end: 20200319
  6. CARTINEX [Concomitant]
     Indication: Cardiac disorder
     Dosage: TWO TIMES A DAY
     Route: 048
     Dates: end: 20200319
  7. METFORMIN HYDROCHLORIDE\VILDAGLIPTIN [Concomitant]
     Active Substance: METFORMIN HYDROCHLORIDE\VILDAGLIPTIN
     Indication: Diabetes mellitus
     Dosage: DAILY
     Route: 048
     Dates: end: 20200319
  8. DIAMICRON [Concomitant]
     Indication: Diabetes mellitus
     Dosage: DAILY
     Route: 048
     Dates: end: 20200319
  9. TORSEMIDE [Concomitant]
     Active Substance: TORSEMIDE
     Indication: Blood pressure measurement
     Dosage: DAILY
     Route: 048
     Dates: end: 20200319
  10. MUCAIN GEL [Concomitant]
     Indication: Gastrooesophageal reflux disease
     Dosage: THREE TIMES A DAY
     Route: 048
     Dates: end: 20200319

REACTIONS (2)
  - Nervousness [Unknown]
  - Death [Fatal]

NARRATIVE: CASE EVENT DATE: 20200319
